FAERS Safety Report 5602777-6 (Version None)
Quarter: 2008Q1

REPORT INFORMATION
  Report Type: 
  Country: None (occurrence: None)
  Receive Date: 20080125
  Receipt Date: 20080117
  Transmission Date: 20080703
  Serious: Yes (Hospitalization, Other)
  Sender: FDA-Public Use
  Company Number: BR-ABBOTT-07P-020-0423883-00

PATIENT
  Sex: Female
  Weight: 60 kg

DRUGS (3)
  1. HUMIRA [Suspect]
     Indication: RHEUMATOID ARTHRITIS
     Dosage: ONE DOSE EVERY 14 DAYS
     Route: 058
     Dates: start: 20060101, end: 20071001
  2. ETORICOXIB [Concomitant]
     Indication: RHEUMATOID ARTHRITIS
  3. DEFLAZACORT [Concomitant]
     Indication: RHEUMATOID ARTHRITIS

REACTIONS (4)
  - ARTHRALGIA [None]
  - DEVICE MIGRATION [None]
  - DEVICE RELATED INFECTION [None]
  - FRACTURE [None]
